FAERS Safety Report 19830713 (Version 8)
Quarter: 2022Q1

REPORT INFORMATION
  Report Type: Report from Study
  Country: US (occurrence: US)
  Receive Date: 20210915
  Receipt Date: 20220224
  Transmission Date: 20220423
  Serious: Yes (Other)
  Sender: FDA-Public Use
  Company Number: US-NOVARTISPH-NVSC2021US208615

PATIENT
  Sex: Male

DRUGS (1)
  1. ENTRESTO [Suspect]
     Active Substance: SACUBITRIL\VALSARTAN
     Indication: Product used for unknown indication
     Dosage: 50 MG (24/26 MG), BID
     Route: 048
     Dates: start: 202106

REACTIONS (7)
  - Anaemia [Not Recovered/Not Resolved]
  - Cataract [Unknown]
  - Throat clearing [Unknown]
  - Weight decreased [Unknown]
  - Constipation [Unknown]
  - Device occlusion [Unknown]
  - Headache [Recovered/Resolved]
